FAERS Safety Report 23124299 (Version 4)
Quarter: 2024Q4

REPORT INFORMATION
  Report Type: Report from Study
  Country: CA (occurrence: CA)
  Receive Date: 20231030
  Receipt Date: 20241125
  Transmission Date: 20250115
  Serious: Yes (Other)
  Sender: OTSUKA
  Company Number: CA-OTSUKA-2023_027700

PATIENT
  Sex: Male

DRUGS (1)
  1. ARIPIPRAZOLE [Suspect]
     Active Substance: ARIPIPRAZOLE
     Indication: Schizophrenia
     Dosage: 400 MG, EVERY 4 WEEKS (EVERY 28 DAYS)
     Route: 030
     Dates: start: 20230928

REACTIONS (7)
  - Hallucination [Unknown]
  - Feeling abnormal [Unknown]
  - Delusion [Unknown]
  - Insomnia [Unknown]
  - Diarrhoea [Unknown]
  - Anxiety [Unknown]
  - Drug ineffective [Unknown]
